FAERS Safety Report 21712482 (Version 1)
Quarter: 2022Q4

REPORT INFORMATION
  Report Type: Spontaneous
  Country: US (occurrence: None)
  Receive Date: 20221211
  Receipt Date: 20221211
  Transmission Date: 20230113
  Serious: Yes (Other)
  Sender: FDA-Public Use
  Company Number: None

PATIENT
  Age: 61 Year
  Sex: Female
  Weight: 74.25 kg

DRUGS (3)
  1. PAXLOVID [Suspect]
     Active Substance: NIRMATRELVIR\RITONAVIR
     Indication: COVID-19
     Dates: start: 20221208
  2. vitamin D + C [Concomitant]
  3. MELATONIN [Concomitant]
     Active Substance: MELATONIN

REACTIONS (6)
  - Pharyngeal hypoaesthesia [None]
  - Hypoaesthesia oral [None]
  - Dysgeusia [None]
  - Dyspepsia [None]
  - Sleep disorder [None]
  - Regurgitation [None]

NARRATIVE: CASE EVENT DATE: 20221210
